FAERS Safety Report 10023467 (Version 1)
Quarter: 2014Q1

REPORT INFORMATION
  Report Type: Spontaneous
  Country: BR (occurrence: BR)
  Receive Date: 20140320
  Receipt Date: 20140320
  Transmission Date: 20141002
  Serious: Yes (Other)
  Sender: FDA-Public Use
  Company Number: BR-ROCHE-1365941

PATIENT
  Age: 61 Year
  Sex: Male
  Weight: 93 kg

DRUGS (5)
  1. RIVOTRIL [Suspect]
     Indication: NERVOUSNESS
     Route: 048
     Dates: start: 2005
  2. RIVOTRIL [Suspect]
     Indication: ANXIETY
  3. RIVOTRIL [Suspect]
     Indication: PANIC DISORDER
  4. ALPRAZOLAM [Concomitant]
     Indication: SLEEP DISORDER
     Route: 065
     Dates: start: 2011
  5. SYSTANE [Concomitant]
     Indication: CATARACT
     Route: 065
     Dates: start: 2013

REACTIONS (2)
  - Cerebrovascular accident [Unknown]
  - Cataract [Not Recovered/Not Resolved]
